FAERS Safety Report 17630199 (Version 1)
Quarter: 2020Q2

REPORT INFORMATION
  Report Type: Spontaneous
  Country: US (occurrence: US)
  Receive Date: 20200404
  Receipt Date: 20200404
  Transmission Date: 20200713
  Serious: No
  Sender: FDA-Public Use
  Company Number: None

PATIENT
  Age: 37 Year
  Sex: Female
  Weight: 81 kg

DRUGS (1)
  1. SINGULAIR [Suspect]
     Active Substance: MONTELUKAST SODIUM
     Indication: CHRONIC OBSTRUCTIVE PULMONARY DISEASE
     Dates: start: 20200404

REACTIONS (5)
  - Mouth ulceration [None]
  - Pain in jaw [None]
  - Mouth haemorrhage [None]
  - Hyperaesthesia teeth [None]
  - Chronic cheek biting [None]

NARRATIVE: CASE EVENT DATE: 20200404
